FAERS Safety Report 24793095 (Version 1)
Quarter: 2024Q4

REPORT INFORMATION
  Report Type: Spontaneous
  Country: CN (occurrence: CN)
  Receive Date: 20241231
  Receipt Date: 20241231
  Transmission Date: 20250115
  Serious: Yes (Other)
  Sender: SANOFI AVENTIS
  Company Number: CN-SA-2024SA382991

PATIENT
  Age: 24 Year
  Sex: Female
  Weight: 50 kg

DRUGS (2)
  1. ZOLPIDEM TARTRATE [Suspect]
     Active Substance: ZOLPIDEM TARTRATE
     Indication: Intentional self-injury
     Dosage: 14 DF, QD
     Route: 048
     Dates: start: 20240910, end: 20240910
  2. ESZOPICLONE [Suspect]
     Active Substance: ESZOPICLONE
     Indication: Intentional self-injury
     Dosage: 7 DF, QD
     Route: 048
     Dates: start: 20240910, end: 20240910

REACTIONS (11)
  - Electrocardiogram QT prolonged [Recovering/Resolving]
  - Unresponsive to stimuli [Recovering/Resolving]
  - Arrhythmia [Recovering/Resolving]
  - Gastritis [Recovering/Resolving]
  - Toxicity to various agents [Recovering/Resolving]
  - Mental fatigue [Recovering/Resolving]
  - Electrocardiogram U-wave abnormality [Recovering/Resolving]
  - Sinus bradycardia [Recovering/Resolving]
  - Lethargy [Recovering/Resolving]
  - Somnolence [Recovering/Resolving]
  - Product use in unapproved indication [Unknown]

NARRATIVE: CASE EVENT DATE: 20240910
